FAERS Safety Report 10161219 (Version 6)
Quarter: 2014Q3

REPORT INFORMATION
  Report Type: Spontaneous
  Country: US (occurrence: US)
  Receive Date: 20140508
  Receipt Date: 20140725
  Transmission Date: 20150326
  Serious: Yes (Other)
  Sender: FDA-Public Use
  Company Number: PHEH2012US026123

PATIENT
  Sex: Male

DRUGS (9)
  1. PREDNISONE. [Concomitant]
     Active Substance: PREDNISONE
  2. NEUPOGEN [Concomitant]
     Active Substance: FILGRASTIM
  3. ZOLOFT [Concomitant]
     Active Substance: SERTRALINE HYDROCHLORIDE
  4. CARBOPLATIN. [Concomitant]
     Active Substance: CARBOPLATIN
  5. ZYTIGA [Concomitant]
     Active Substance: ABIRATERONE ACETATE
  6. TAXOTERE [Concomitant]
     Active Substance: DOCETAXEL
  7. ZOMETA [Suspect]
     Active Substance: ZOLEDRONIC ACID
     Indication: METASTASES TO BONE
     Dosage: UNK UKN, UNK
     Route: 041
     Dates: end: 20110927
  8. VICODIN [Concomitant]
     Active Substance: ACETAMINOPHEN\HYDROCODONE BITARTRATE
  9. TRELSTAR LA [Concomitant]

REACTIONS (200)
  - Osteonecrosis of jaw [Unknown]
  - Infection [Unknown]
  - Sinusitis [Unknown]
  - Gynaecomastia [Unknown]
  - Otitis media [Unknown]
  - Tenderness [Unknown]
  - Gingival bleeding [Unknown]
  - Upper-airway cough syndrome [Unknown]
  - Left atrial dilatation [Unknown]
  - Aortic valve incompetence [Unknown]
  - Pulmonary valve incompetence [Unknown]
  - Tooth infection [Unknown]
  - Groin pain [Unknown]
  - Exostosis [Unknown]
  - Arrhythmia [Unknown]
  - Induration [Unknown]
  - Tooth loss [Unknown]
  - Electrocardiogram PR prolongation [Unknown]
  - Sepsis [Unknown]
  - Abdominal pain [Unknown]
  - Chills [Unknown]
  - Haemorrhoids [Unknown]
  - Incisional hernia [Unknown]
  - Pelvic cyst [Unknown]
  - Osteosclerosis [Unknown]
  - Spinal osteoarthritis [Unknown]
  - Plasma cell myeloma [Unknown]
  - Depression [Unknown]
  - Haematuria [Unknown]
  - Vision blurred [Unknown]
  - Toothache [Unknown]
  - Left ventricular hypertrophy [Unknown]
  - Osteoarthritis [Unknown]
  - Hyponatraemia [Unknown]
  - Flank pain [Unknown]
  - Hyperthyroidism [Unknown]
  - Hypertrophy [Unknown]
  - Seborrhoeic keratosis [Unknown]
  - Aortic valve disease [Unknown]
  - Tricuspid valve disease [Unknown]
  - Nocturia [Unknown]
  - Hypothyroidism [Unknown]
  - Rash [Unknown]
  - Diarrhoea [Unknown]
  - Chest pain [Unknown]
  - Anxiety [Unknown]
  - Hydronephrosis [Unknown]
  - Aortic arteriosclerosis [Unknown]
  - Discomfort [Unknown]
  - Osteitis [Unknown]
  - Dehydration [Unknown]
  - Neck mass [Unknown]
  - Leukocytosis [Unknown]
  - Basal cell carcinoma [Unknown]
  - Blepharitis [Unknown]
  - Dental caries [Unknown]
  - Erosive oesophagitis [Unknown]
  - Proctalgia [Unknown]
  - Anaemia [Unknown]
  - Deafness [Unknown]
  - Mitral valve incompetence [Unknown]
  - Cardiac murmur [Unknown]
  - Thyroid neoplasm [Unknown]
  - Carotid artery stenosis [Unknown]
  - Metastases to bone [Unknown]
  - Pyuria [Unknown]
  - Diverticulitis [Unknown]
  - Vasodilatation [Unknown]
  - Second primary malignancy [Unknown]
  - Proteus test positive [Unknown]
  - Cardiac disorder [Unknown]
  - Soft tissue inflammation [Unknown]
  - Renal failure [Unknown]
  - Periodontal disease [Unknown]
  - Tachycardia [Unknown]
  - Alopecia [Unknown]
  - Dizziness [Unknown]
  - Emotional distress [Unknown]
  - Diverticulum intestinal [Unknown]
  - Osteomyelitis [Unknown]
  - Intervertebral disc space narrowing [Unknown]
  - Pneumonia [Unknown]
  - Atelectasis [Unknown]
  - Conjunctival haemorrhage [Unknown]
  - Urosepsis [Unknown]
  - Thyroid cyst [Unknown]
  - Skin cancer [Unknown]
  - Hypertensive heart disease [Unknown]
  - Swelling face [Unknown]
  - Foot deformity [Unknown]
  - Squamous cell carcinoma of skin [Unknown]
  - Major depression [Unknown]
  - Deep vein thrombosis [Unknown]
  - Hypokalaemia [Recovered/Resolved]
  - Back pain [Unknown]
  - Constipation [Unknown]
  - Hypocalcaemia [Unknown]
  - Lethargy [Unknown]
  - Deformity [Unknown]
  - Pancreatic atrophy [Unknown]
  - Exposed bone in jaw [Unknown]
  - Upper respiratory tract infection [Unknown]
  - Gastritis [Unknown]
  - Rhinorrhoea [Unknown]
  - Malaise [Unknown]
  - Carotid arteriosclerosis [Unknown]
  - Cardiac valve disease [Unknown]
  - Erectile dysfunction [Unknown]
  - Ureteric obstruction [Unknown]
  - Vertebral foraminal stenosis [Unknown]
  - Hepatic cyst [Unknown]
  - Gastroenteritis [Unknown]
  - Renal colic [Unknown]
  - Mitral valve disease [Unknown]
  - Nephropathy [Unknown]
  - Cardiac failure congestive [Unknown]
  - Oedema [Unknown]
  - Dyspnoea [Unknown]
  - Dyspepsia [Unknown]
  - Pain in extremity [Unknown]
  - Pyrexia [Unknown]
  - Pain [Unknown]
  - Physical disability [Unknown]
  - Nephrolithiasis [Unknown]
  - Cardiomegaly [Unknown]
  - Hypertension [Unknown]
  - Hypoxia [Unknown]
  - Renal cyst [Unknown]
  - Insulin resistance [Unknown]
  - Cough [Unknown]
  - Hyperglycaemia [Unknown]
  - Arthritis [Unknown]
  - Oedema peripheral [Unknown]
  - Kyphosis [Unknown]
  - Tricuspid valve incompetence [Unknown]
  - Obesity [Unknown]
  - Musculoskeletal stiffness [Unknown]
  - Bladder cancer [Unknown]
  - Testicular atrophy [Unknown]
  - Sinus tachycardia [Unknown]
  - Hyperkeratosis [Unknown]
  - Abdominal mass [Unknown]
  - Papule [Unknown]
  - Skin lesion [Unknown]
  - Sebaceous hyperplasia [Unknown]
  - Erythema [Unknown]
  - Prostate cancer metastatic [Unknown]
  - Goitre [Unknown]
  - Stress urinary incontinence [Unknown]
  - Chest discomfort [Unknown]
  - Endocarditis [Unknown]
  - Dry eye [Unknown]
  - Abdominal tenderness [Unknown]
  - Fatigue [Unknown]
  - Oropharyngeal pain [Unknown]
  - Libido decreased [Unknown]
  - Nausea [Unknown]
  - Hepatic steatosis [Unknown]
  - Peripheral vascular disorder [Unknown]
  - Pain in jaw [Unknown]
  - Hyperlipidaemia [Unknown]
  - Large intestine polyp [Unknown]
  - Bronchitis [Unknown]
  - Pharyngitis [Unknown]
  - Diverticulum [Unknown]
  - Urinary tract infection [Unknown]
  - Cataract [Unknown]
  - Gingival swelling [Unknown]
  - Myalgia [Unknown]
  - Glucose tolerance impaired [Unknown]
  - Atrioventricular block first degree [Unknown]
  - Angina pectoris [Unknown]
  - Embolism venous [Unknown]
  - Essential hypertension [Unknown]
  - Abdominal hernia [Unknown]
  - Platelet count decreased [Unknown]
  - Hypermetropia [Unknown]
  - Bone pain [Unknown]
  - Asthenia [Unknown]
  - Musculoskeletal pain [Unknown]
  - Dysphagia [Unknown]
  - Arthralgia [Unknown]
  - Injury [Unknown]
  - Calculus ureteric [Unknown]
  - Metastases to spine [Unknown]
  - Hypercalcaemia [Unknown]
  - Bone lesion [Unknown]
  - Mass [Unknown]
  - Pyelonephritis [Unknown]
  - Thrombophlebitis [Unknown]
  - Eczema nummular [Unknown]
  - Ureteric dilatation [Unknown]
  - Cellulitis [Unknown]
  - Dyslipidaemia [Unknown]
  - Intervertebral disc degeneration [Unknown]
  - Muscle spasms [Unknown]
  - Influenza like illness [Unknown]
  - Urinary incontinence [Unknown]
  - Peripheral swelling [Unknown]
  - Gastrooesophageal reflux disease [Unknown]
